FAERS Safety Report 8611432-X (Version None)
Quarter: 2012Q3

REPORT INFORMATION
  Report Type: 
  Country: None (occurrence: None)
  Receive Date: 20120822
  Receipt Date: 20120815
  Transmission Date: 20120928
  Serious: No
  Sender: FDA-Public Use
  Company Number: US-B.I. PHARMACEUTICALS,INC./RIDGEFIELD-2012-BP-19566BP

PATIENT
  Sex: Female

DRUGS (13)
  1. CLONAZEPAM [Concomitant]
     Indication: ANXIETY
     Route: 048
  2. EYE VITAMIN [Concomitant]
     Route: 048
  3. TEMAZEPAM [Concomitant]
     Indication: ANXIETY
     Route: 048
  4. PRADAXA [Suspect]
     Indication: ATRIAL FIBRILLATION
     Dosage: 150 MG
     Route: 048
     Dates: start: 20100101
  5. ROPINIROLE [Concomitant]
     Indication: RESTLESS LEGS SYNDROME
     Dosage: 2 MG
     Route: 048
  6. DIOVAN [Concomitant]
     Indication: HYPERTENSION
     Dosage: 80 MG
     Route: 048
  7. FUROSEMIDE [Concomitant]
     Indication: FLUID RETENTION
     Route: 048
  8. SYNTHROID [Concomitant]
     Indication: HYPOTHYROIDISM
     Dosage: 125 MCG
     Route: 048
  9. CARVEDILOL [Concomitant]
     Indication: HYPERTENSION
     Dosage: 25 MG
     Route: 048
  10. DIGOXIN [Concomitant]
     Indication: CARDIAC DISORDER
     Dosage: 12.5 MG
     Route: 048
  11. PROBIOTIC [Concomitant]
     Route: 048
  12. SIMVASTATIN [Concomitant]
     Indication: BLOOD CHOLESTEROL INCREASED
     Dosage: 20 MG
     Route: 048
  13. NORTRIPTYLINE [Concomitant]
     Indication: DEPRESSION
     Route: 048

REACTIONS (4)
  - TENSION [None]
  - DYSPEPSIA [None]
  - ABDOMINAL DISCOMFORT [None]
  - FLATULENCE [None]
